FAERS Safety Report 7760866-4 (Version None)
Quarter: 2011Q3

REPORT INFORMATION
  Report Type: 
  Country: None (occurrence: None)
  Receive Date: 20110919
  Receipt Date: 20110917
  Transmission Date: 20111222
  Serious: Yes (Other)
  Sender: FDA-Public Use
  Company Number: US-PFIZER INC-2011220504

PATIENT
  Sex: Female
  Weight: 68.027 kg

DRUGS (2)
  1. CHANTIX [Suspect]
     Dosage: UNK
     Route: 048
     Dates: start: 20110901, end: 20110916
  2. CHANTIX [Suspect]
     Indication: SMOKING CESSATION THERAPY
     Dosage: 0.5 MG, 1X/DAY
     Route: 048
     Dates: start: 20110901, end: 20110901

REACTIONS (10)
  - SPEECH DISORDER [None]
  - RASH [None]
  - CHEST PAIN [None]
  - FEELING ABNORMAL [None]
  - PAIN IN JAW [None]
  - PAIN IN EXTREMITY [None]
  - TREMOR [None]
  - ABNORMAL DREAMS [None]
  - DYSKINESIA [None]
  - PRURITUS [None]
